FAERS Safety Report 18133998 (Version 1)
Quarter: 2020Q3

REPORT INFORMATION
  Report Type: Spontaneous
  Country: US (occurrence: US)
  Receive Date: 20200807
  Receipt Date: 20200807
  Transmission Date: 20201103
  Serious: Yes (Hospitalization)
  Sender: FDA-Public Use
  Company Number: None

PATIENT
  Age: 59 Year
  Sex: Male

DRUGS (28)
  1. CLOPIDOGREL [Concomitant]
     Active Substance: CLOPIDOGREL BISULFATE
  2. FEROSUL [Concomitant]
     Active Substance: FERROUS SULFATE
  3. METOPROLOL. [Concomitant]
     Active Substance: METOPROLOL
  4. TUMERIC [Concomitant]
     Active Substance: HERBALS\TURMERIC
  5. AMLOD/BENAZPRL CAPSULE 5/10 [Concomitant]
     Active Substance: AMLODIPINE BESYLATE\BENAZEPRIL HYDROCHLORIDE
  6. BENAZEPRIL [Concomitant]
     Active Substance: BENAZEPRIL HYDROCHLORIDE
  7. D3?1000 [Concomitant]
  8. PANTOPRAZOLE [Concomitant]
     Active Substance: PANTOPRAZOLE
  9. REPATHA [Suspect]
     Active Substance: EVOLOCUMAB
     Indication: HYPERLIPIDAEMIA
     Dosage: ?          OTHER FREQUENCY:QM (30D);?
     Route: 058
     Dates: start: 20180616
  10. ELIQUIS [Concomitant]
     Active Substance: APIXABAN
  11. RANOLAZINE. [Concomitant]
     Active Substance: RANOLAZINE
  12. ALLOURINOL [Concomitant]
  13. CINNAMON. [Concomitant]
     Active Substance: CINNAMON
  14. FLUOXETINE [Concomitant]
     Active Substance: FLUOXETINE HYDROCHLORIDE
  15. FOLIC ACID. [Concomitant]
     Active Substance: FOLIC ACID
  16. FUROSEMIDE. [Concomitant]
     Active Substance: FUROSEMIDE
  17. MITIGARE [Concomitant]
     Active Substance: COLCHICINE
  18. PROMETH/COD [Concomitant]
  19. ASPIRIN 81 [Concomitant]
     Active Substance: ASPIRIN
  20. CEFDINIR. [Concomitant]
     Active Substance: CEFDINIR
  21. LEVOFLOXACIN. [Concomitant]
     Active Substance: LEVOFLOXACIN
  22. METHYLPRED [Concomitant]
     Active Substance: METHYLPREDNISOLONE
  23. METOPROL SUC [Concomitant]
  24. METOPROL TAR [Concomitant]
  25. PREDNISONE. [Concomitant]
     Active Substance: PREDNISONE
  26. SPIRONOLACT [Concomitant]
     Active Substance: SPIRONOLACTONE
  27. CITALOPRAM [Concomitant]
     Active Substance: CITALOPRAM HYDROBROMIDE
  28. DOXYCYCL HYC [Concomitant]

REACTIONS (1)
  - Cardiac operation [None]

NARRATIVE: CASE EVENT DATE: 20200709
